FAERS Safety Report 10494372 (Version 1)
Quarter: 2014Q4

REPORT INFORMATION
  Report Type: Spontaneous
  Country: GB (occurrence: None)
  Receive Date: 20141002
  Receipt Date: 20141002
  Transmission Date: 20150528
  Serious: Yes (Other)
  Sender: FDA-Public Use
  Company Number: None

PATIENT
  Age: 17 Year
  Sex: Female
  Weight: 44.45 kg

DRUGS (1)
  1. CABERGOLINE. [Suspect]
     Active Substance: CABERGOLINE
     Dosage: HALF A TABLET WEEKLY TAKEN BY MOUTH
     Route: 048

REACTIONS (5)
  - Memory impairment [None]
  - Hair growth abnormal [None]
  - Mental impairment [None]
  - Disturbance in attention [None]
  - Depression [None]

NARRATIVE: CASE EVENT DATE: 20140926
